FAERS Safety Report 21282780 (Version 2)
Quarter: 2022Q3

REPORT INFORMATION
  Report Type: Spontaneous
  Country: CN (occurrence: CN)
  Receive Date: 20220901
  Receipt Date: 20220907
  Transmission Date: 20221027
  Serious: Yes (Other)
  Sender: FDA-Public Use
  Company Number: CN-PFIZER INC-PV202200051793

PATIENT
  Age: 53 Year
  Sex: Male
  Weight: 67 kg

DRUGS (4)
  1. ATORVASTATIN CALCIUM [Suspect]
     Active Substance: ATORVASTATIN CALCIUM
     Indication: Hypercholesterolaemia
     Dosage: 20 MG, 1X/DAY
     Route: 048
     Dates: start: 20220812, end: 20220821
  2. BUTYLPHTHALIDE [Concomitant]
     Active Substance: BUTYLPHTHALIDE
     Indication: Cerebral infarction
     Dosage: 0.2 G, 3X/DAY
     Route: 048
     Dates: start: 20220813, end: 20220823
  3. PROBUCOL [Concomitant]
     Active Substance: PROBUCOL
     Indication: Hypercholesterolaemia
     Dosage: 0.5 G, 2X/DAY
     Route: 048
     Dates: start: 20220812, end: 20220813
  4. ASPIRIN [Concomitant]
     Active Substance: ASPIRIN
     Indication: Thrombosis prophylaxis
     Dosage: 100 MG, 1X/DAY
     Route: 048
     Dates: start: 20220813, end: 20220817

REACTIONS (11)
  - Hepatic enzyme increased [Recovering/Resolving]
  - Blood pressure abnormal [Unknown]
  - Muscular weakness [Unknown]
  - Gait disturbance [Unknown]
  - Speech disorder [Unknown]
  - Cerebrovascular disorder [Unknown]
  - Weight bearing difficulty [Unknown]
  - Blood cholesterol increased [Unknown]
  - Dysarthria [Unknown]
  - Hypertonia [Unknown]
  - Condition aggravated [Unknown]

NARRATIVE: CASE EVENT DATE: 20220822
